FAERS Safety Report 4999075-0 (Version None)
Quarter: 2006Q1

REPORT INFORMATION
  Report Type: 
  Country: None (occurrence: None)
  Receive Date: 20060315
  Receipt Date: 20060206
  Transmission Date: 20060701
  Serious: Yes (Other)
  Sender: FDA-Public Use
  Company Number: 435410

PATIENT
  Age: 70 Year
  Sex: Female
  Weight: 80.7 kg

DRUGS (10)
  1. BONIVA [Suspect]
     Indication: OSTEOPOROSIS
     Dosage: 150 MG 1 PER MONTH ORAL
     Route: 048
     Dates: start: 20060201
  2. DARVOCET [Suspect]
     Indication: PAIN
     Dosage: ORAL
     Route: 048
  3. DURAGESIC-100 [Suspect]
     Indication: PAIN
     Dosage: 75 MCG 1 PER 3 DAY
  4. CELEBREX [Concomitant]
  5. PREVACID [Concomitant]
  6. PLAVIX [Concomitant]
  7. ASPIRIN [Concomitant]
  8. IBUPROFEN [Concomitant]
  9. VERELAN (VERAPAMIL) [Concomitant]
  10. LORAZEPAM [Concomitant]

REACTIONS (5)
  - BACK PAIN [None]
  - CONFUSIONAL STATE [None]
  - DIFFICULTY IN WALKING [None]
  - MEMORY IMPAIRMENT [None]
  - PYREXIA [None]
